FAERS Safety Report 9215106 (Version 2)
Quarter: 2013Q3

REPORT INFORMATION
  Report Type: Spontaneous
  Country: US (occurrence: US)
  Receive Date: 20130405
  Receipt Date: 20130808
  Transmission Date: 20140515
  Serious: Yes (Hospitalization)
  Sender: FDA-Public Use
  Company Number: US-BAYER-2013-041265

PATIENT
  Age: 41 Year
  Sex: Female

DRUGS (9)
  1. YASMIN [Suspect]
  2. YAZ [Suspect]
  3. MUCINEX [Concomitant]
  4. FLEXERIL [Concomitant]
     Indication: MUSCLE SPASMS
     Dosage: 10 MG, 1 AT HS
     Route: 048
  5. PERCOCET [Concomitant]
     Indication: PAIN
     Dosage: 5-325 MG TAKE 1 TABLET EVERY 6-8 PRN
     Route: 048
  6. VICODIN [Concomitant]
     Indication: PAIN
     Dosage: 5-500 MG TAKE 1 TABLET BY MOUTH EVERY 6 HOURS AS NEEDED
     Route: 048
  7. LEVAQUIN [Concomitant]
     Dosage: 750 MG, 1 TABLET ONCE A DAY
     Route: 048
  8. TORADOL [Concomitant]
     Dosage: 30 MG, UNK
     Route: 042
  9. ATROVENT [Concomitant]

REACTIONS (4)
  - Pulmonary embolism [Recovered/Resolved]
  - Injury [Recovered/Resolved]
  - Pain [Recovered/Resolved]
  - Anxiety [None]
